FAERS Safety Report 6306922-9 (Version None)
Quarter: 2009Q3

REPORT INFORMATION
  Report Type: 
  Country: None (occurrence: None)
  Receive Date: 20090810
  Receipt Date: 20090724
  Transmission Date: 20100115
  Serious: Yes (Hospitalization)
  Sender: FDA-Public Use
  Company Number: F03200900091

PATIENT
  Age: 59 Year
  Sex: Male

DRUGS (12)
  1. FLUDARABINE PHOSPHATE [Suspect]
     Indication: CHRONIC LYMPHOCYTIC LEUKAEMIA
     Dosage: 40 MG/M2 QD ORAL
     Route: 048
     Dates: start: 20090515, end: 20090616
  2. CYCLOPHOSPHAMIDE [Suspect]
     Indication: CHRONIC LYMPHOCYTIC LEUKAEMIA
     Dosage: 250 MG/M2 QD, ORAL
     Route: 048
     Dates: start: 20090515, end: 20090616
  3. (ALEMTUZUMAB) - UNKNOWN - UNIT DOSE : UNKNOWN [Concomitant]
     Indication: CHRONIC LYMPHOCYTIC LEUKAEMIA
  4. ASCAL (ACETYLSALICYLATE CALCIUM) [Concomitant]
  5. LERDIP (LERCANIDIPINE HYDROCHLORIDE) [Concomitant]
  6. BISOPROLOL FUMARATE [Concomitant]
  7. SIMVASTATIN [Concomitant]
  8. PERINDOPRIL ERBUMINE [Concomitant]
  9. METFORMIN HCL [Concomitant]
  10. GLIPIZIDE [Concomitant]
  11. COVERSYL PLUS [Concomitant]
  12. COTRIM [Concomitant]

REACTIONS (2)
  - ANGINA UNSTABLE [None]
  - HAEMOLYSIS [None]
